FAERS Safety Report 5340787-7 (Version None)
Quarter: 2007Q2

REPORT INFORMATION
  Report Type: 
  Country: None (occurrence: None)
  Receive Date: 20070405
  Receipt Date: 20070103
  Transmission Date: 20071010
  Serious: No
  Sender: FDA-Public Use
  Company Number: US200701000707

PATIENT
  Age: 55 Year
  Sex: Male

DRUGS (4)
  1. CYMBALTA [Suspect]
     Indication: HYPOAESTHESIA
  2. LAMICTAL [Concomitant]
  3. REQUIP [Concomitant]
  4. ADVIL [Concomitant]

REACTIONS (1)
  - NEUROPATHY [None]
